FAERS Safety Report 11804278 (Version 4)
Quarter: 2016Q2

REPORT INFORMATION
  Report Type: Spontaneous
  Country: JP (occurrence: JP)
  Receive Date: 20151204
  Receipt Date: 20160615
  Transmission Date: 20160815
  Serious: Yes (Death, Hospitalization)
  Sender: FDA-Public Use
  Company Number: JP-BAXTER-2015BAX060905

PATIENT
  Age: 30 Year
  Sex: Male

DRUGS (21)
  1. CELLTOP 25 MG, CAPSULE [Suspect]
     Active Substance: ETOPOSIDE
     Route: 065
  2. CELLTOP 25 MG, CAPSULE [Suspect]
     Active Substance: ETOPOSIDE
     Route: 065
     Dates: start: 20030923, end: 200403
  3. NEDAPLATIN [Suspect]
     Active Substance: NEDAPLATIN
     Route: 065
     Dates: start: 201011, end: 201204
  4. IRINOTECAN HYDROCHLORIDE HYDRATE [Concomitant]
     Active Substance: IRINOTECAN HYDROCHLORIDE
     Route: 065
     Dates: start: 20110913, end: 20111115
  5. CISPLATIN. [Suspect]
     Active Substance: CISPLATIN
     Route: 065
     Dates: start: 20030923, end: 200403
  6. GEMZAR [Concomitant]
     Active Substance: GEMCITABINE HYDROCHLORIDE
     Route: 065
     Dates: start: 20111116
  7. PACLITAXEL. [Concomitant]
     Active Substance: PACLITAXEL
     Indication: TESTICULAR NEOPLASM
     Dosage: 210 MG/M2 X 7
     Route: 065
     Dates: start: 201011, end: 201204
  8. IRINOTECAN HYDROCHLORIDE HYDRATE [Concomitant]
     Active Substance: IRINOTECAN HYDROCHLORIDE
     Route: 065
     Dates: start: 20110913, end: 20111115
  9. CELLTOP 25 MG, CAPSULE [Suspect]
     Active Substance: ETOPOSIDE
     Indication: TESTICULAR NEOPLASM
     Dosage: 500 MG/M2 X 8
     Route: 065
     Dates: start: 20030923
  10. NEDAPLATIN [Suspect]
     Active Substance: NEDAPLATIN
     Indication: TESTICULAR NEOPLASM
     Dosage: 100 GM/M2 X7
     Route: 065
  11. BLEOMYCIN HYDROCHLORIDE [Concomitant]
     Active Substance: BLEOMYCIN HYDROCHLORIDE
     Indication: TESTICULAR NEOPLASM
     Dosage: 90 MGX 3
     Route: 042
     Dates: start: 20030923, end: 20031202
  12. PACLITAXEL. [Concomitant]
     Active Substance: PACLITAXEL
     Route: 065
     Dates: start: 20111116
  13. IRINOTECAN HYDROCHLORIDE HYDRATE [Concomitant]
     Active Substance: IRINOTECAN HYDROCHLORIDE
     Indication: TESTICULAR NEOPLASM
     Route: 065
     Dates: start: 20110601
  14. IFEX [Suspect]
     Active Substance: IFOSFAMIDE
     Route: 065
     Dates: start: 20101027, end: 20110531
  15. CISPLATIN. [Suspect]
     Active Substance: CISPLATIN
     Indication: TESTICULAR NEOPLASM
     Dosage: 100 MG/M2 X 8
     Route: 065
     Dates: start: 20030923
  16. IFEX [Suspect]
     Active Substance: IFOSFAMIDE
     Indication: TESTICULAR NEOPLASM
     Route: 065
     Dates: start: 20101027
  17. CISPLATIN. [Suspect]
     Active Substance: CISPLATIN
     Route: 065
  18. GEMZAR [Concomitant]
     Active Substance: GEMCITABINE HYDROCHLORIDE
     Indication: TESTICULAR NEOPLASM
     Route: 065
     Dates: start: 20111116
  19. GEMZAR [Concomitant]
     Active Substance: GEMCITABINE HYDROCHLORIDE
     Route: 065
     Dates: start: 20111116, end: 201204
  20. BLEOMYCIN HYDROCHLORIDE [Concomitant]
     Active Substance: BLEOMYCIN HYDROCHLORIDE
     Route: 065
  21. TEGAFUR/GIMERACIL/OTERACIL POTASSIUM [Concomitant]
     Active Substance: GIMERACIL\OTERACIL\TEGAFUR
     Indication: PRODUCT USED FOR UNKNOWN INDICATION
     Route: 065
     Dates: start: 20120628, end: 20131024

REACTIONS (1)
  - Myelodysplastic syndrome [Fatal]

NARRATIVE: CASE EVENT DATE: 20150316
